FAERS Safety Report 13198587 (Version 2)
Quarter: 2017Q1

REPORT INFORMATION
  Report Type: Spontaneous
  Country: US (occurrence: US)
  Receive Date: 20170208
  Receipt Date: 20170216
  Transmission Date: 20170428
  Serious: Yes (Life-Threatening, Other)
  Sender: FDA-Public Use
  Company Number: US-SAOL THERAPEUTICS-2017SAO00226

PATIENT
  Sex: Female

DRUGS (10)
  1. BACLOFEN. [Suspect]
     Active Substance: BACLOFEN
     Indication: POST LAMINECTOMY SYNDROME
  2. BACLOFEN. [Suspect]
     Active Substance: BACLOFEN
     Dosage: UNK
     Route: 048
  3. NORCO [Suspect]
     Active Substance: ACETAMINOPHEN\HYDROCODONE BITARTRATE
  4. BACLOFEN. [Suspect]
     Active Substance: BACLOFEN
     Indication: PAIN
     Dosage: 230 ?G, \DAY
     Route: 037
  5. MORPHINE [Suspect]
     Active Substance: MORPHINE
     Route: 037
  6. BACLOFEN. [Suspect]
     Active Substance: BACLOFEN
     Indication: MUSCLE SPASTICITY
  7. TRAMADOL. [Suspect]
     Active Substance: TRAMADOL
     Dosage: 50 MG, UNK
  8. BACLOFEN. [Suspect]
     Active Substance: BACLOFEN
     Indication: CHEST PAIN
  9. MARCAINE [Suspect]
     Active Substance: BUPIVACAINE HYDROCHLORIDE
  10. PRIALT [Suspect]
     Active Substance: ZICONOTIDE ACETATE
     Dosage: 0.7 ?G, UNK
     Route: 037

REACTIONS (11)
  - Pruritus [Unknown]
  - Paraesthesia [Unknown]
  - Abasia [Unknown]
  - Pain [Unknown]
  - Adverse drug reaction [Unknown]
  - Somatic symptom disorder [Unknown]
  - Drug dependence [Unknown]
  - Hypertension [Unknown]
  - Therapy non-responder [Unknown]
  - Off label use [Unknown]
  - Malaise [Unknown]
